FAERS Safety Report 6264582-X (Version None)
Quarter: 2009Q3

REPORT INFORMATION
  Report Type: 
  Country: None (occurrence: None)
  Receive Date: 20090710
  Receipt Date: 20090630
  Transmission Date: 20100115
  Serious: Yes (Other)
  Sender: FDA-Public Use
  Company Number: PHBS2008BR06678

PATIENT
  Age: 25 Year
  Sex: Female

DRUGS (2)
  1. CYCLOSPORINE [Suspect]
     Indication: AUTOIMMUNE HEPATITIS
  2. PREDNISONE TAB [Suspect]
     Indication: AUTOIMMUNE HEPATITIS

REACTIONS (4)
  - ABORTION [None]
  - AUTOIMMUNE HEPATITIS [None]
  - CYTOMEGALOVIRUS HEPATITIS [None]
  - DRUG EXPOSURE DURING PREGNANCY [None]
